FAERS Safety Report 10287145 (Version 1)
Quarter: 2014Q3

REPORT INFORMATION
  Report Type: Spontaneous
  Country: DE (occurrence: DE)
  Receive Date: 20140709
  Receipt Date: 20140709
  Transmission Date: 20150326
  Serious: Yes (Death)
  Sender: FDA-Public Use
  Company Number: DE-ACTAVIS-2014-14479

PATIENT
  Age: 42 Year
  Sex: Female

DRUGS (2)
  1. CLOBUTINOL [Suspect]
     Active Substance: CLOBUTINOL
     Indication: SUICIDE ATTEMPT
     Dosage: UNK
     Route: 065
  2. DIPHENHYDRAMINE (UNKNOWN) [Suspect]
     Active Substance: DIPHENHYDRAMINE
     Indication: SUICIDE ATTEMPT
     Dosage: UNK
     Route: 048

REACTIONS (3)
  - Intentional overdose [Fatal]
  - Toxicity to various agents [Fatal]
  - Completed suicide [Fatal]
